FAERS Safety Report 11692433 (Version 2)
Quarter: 2015Q4

REPORT INFORMATION
  Report Type: Spontaneous
  Country: US (occurrence: US)
  Receive Date: 20151103
  Receipt Date: 20151119
  Transmission Date: 20160304
  Serious: No
  Sender: FDA-Public Use
  Company Number: US-VERTEX PHARMACEUTICALS-2015-004850

PATIENT
  Age: 18 Year
  Sex: Male

DRUGS (11)
  1. CLOFAZIMINE [Concomitant]
     Active Substance: CLOFAZIMINE
  2. AMIKACIN [Concomitant]
     Active Substance: AMIKACIN
     Route: 055
  3. MEROPENEM. [Concomitant]
     Active Substance: MEROPENEM
     Route: 042
  4. ORKAMBI [Suspect]
     Active Substance: IVACAFTOR\LUMACAFTOR
     Dosage: UNK
     Route: 048
     Dates: start: 20150916
  5. HYPERTONIC SALINE SOLUTION [Concomitant]
     Active Substance: SODIUM CHLORIDE
  6. CREON [Concomitant]
     Active Substance: PANCRELIPASE AMYLASE\PANCRELIPASE LIPASE\PANCRELIPASE PROTEASE
  7. ORKAMBI [Suspect]
     Active Substance: IVACAFTOR\LUMACAFTOR
     Indication: CYSTIC FIBROSIS
     Dosage: 400MG-250MG, BID
     Route: 048
     Dates: start: 20150714, end: 201508
  8. VITAMINS [Concomitant]
     Active Substance: VITAMINS
  9. TIGECYCLINE. [Concomitant]
     Active Substance: TIGECYCLINE
     Route: 042
  10. ALENDRONATE [Concomitant]
     Active Substance: ALENDRONATE SODIUM
  11. PULMOZYME [Concomitant]
     Active Substance: DORNASE ALFA

REACTIONS (2)
  - Abdominal pain upper [Not Recovered/Not Resolved]
  - Diarrhoea [Unknown]

NARRATIVE: CASE EVENT DATE: 20150814
